FAERS Safety Report 8170466-2 (Version None)
Quarter: 2012Q1

REPORT INFORMATION
  Report Type: 
  Country: None (occurrence: None)
  Receive Date: 20120228
  Receipt Date: 20120227
  Transmission Date: 20120608
  Serious: Yes (Other)
  Sender: FDA-Public Use
  Company Number: US-PFIZER INC-2012051002

PATIENT
  Sex: Male

DRUGS (2)
  1. TIKOSYN [Suspect]
     Dosage: 250 MG, 2X/DAY
     Route: 048
  2. TIKOSYN [Suspect]
     Route: 048

REACTIONS (8)
  - DRY MOUTH [None]
  - PALPITATIONS [None]
  - NASAL DRYNESS [None]
  - FEELING ABNORMAL [None]
  - BLOOD POTASSIUM ABNORMAL [None]
  - ABASIA [None]
  - FATIGUE [None]
  - BLOOD MAGNESIUM ABNORMAL [None]
